FAERS Safety Report 10338919 (Version 2)
Quarter: 2014Q3

REPORT INFORMATION
  Report Type: Spontaneous
  Country: RU (occurrence: RU)
  Receive Date: 20140724
  Receipt Date: 20140908
  Transmission Date: 20150326
  Serious: Yes (Death, Hospitalization)
  Sender: FDA-Public Use
  Company Number: RU-NOVOPROD-416788

PATIENT
  Age: 59 Year
  Sex: Female
  Weight: 130 kg

DRUGS (8)
  1. VICTOZA [Suspect]
     Active Substance: LIRAGLUTIDE
     Indication: TYPE 2 DIABETES MELLITUS
     Dosage: 1.8 MG, QD
     Route: 058
     Dates: start: 201302, end: 201406
  2. DIUVER [Concomitant]
     Active Substance: TORSEMIDE
     Dosage: 5 MG, QD
     Route: 048
  3. TROMBO ASS [Concomitant]
     Dosage: 200 MG, QD
     Route: 048
  4. VEROSPIRONE [Concomitant]
     Dosage: 100 MG, QD
     Route: 048
  5. ACTRAPID [Concomitant]
     Active Substance: INSULIN HUMAN
     Indication: TYPE 2 DIABETES MELLITUS
     Dosage: 24 U, QD (8-8-8 U)
     Route: 058
     Dates: start: 20140608
  6. METFORMIN [Concomitant]
     Active Substance: METFORMIN HYDROCHLORIDE
     Indication: TYPE 2 DIABETES MELLITUS
     Dosage: 3000 MG, QD
     Route: 048
     Dates: start: 20140520, end: 201406
  7. PROTAPHANE HM [Concomitant]
     Indication: TYPE 2 DIABETES MELLITUS
     Dosage: 32 U, QD (16-0-16 U)
     Route: 058
     Dates: start: 20140608
  8. CONCOR [Concomitant]
     Active Substance: BISOPROLOL FUMARATE
     Dosage: 5 MG, QD
     Route: 048

REACTIONS (3)
  - Pancreatic necrosis [Fatal]
  - Weight decreased [Unknown]
  - Blood glucose increased [Unknown]

NARRATIVE: CASE EVENT DATE: 201406
